FAERS Safety Report 10479243 (Version 2)
Quarter: 2014Q4

REPORT INFORMATION
  Report Type: Spontaneous
  Country: US (occurrence: US)
  Receive Date: 20140926
  Receipt Date: 20141124
  Transmission Date: 20150528
  Serious: No
  Sender: FDA-Public Use
  Company Number: US-009507513-1409USA013044

PATIENT
  Sex: Female
  Weight: 76.19 kg

DRUGS (2)
  1. FELODIPINE. [Concomitant]
     Active Substance: FELODIPINE
     Indication: HYPERTENSION
     Dosage: UNK, UNKNOWN
  2. MIRALAX [Suspect]
     Active Substance: POLYETHYLENE GLYCOL 3350
     Indication: CONSTIPATION
     Dosage: 5.67 G, QD
     Route: 048

REACTIONS (4)
  - Drug effect decreased [Unknown]
  - Product use issue [Unknown]
  - Incorrect drug administration duration [Unknown]
  - Underdose [Unknown]
